FAERS Safety Report 12693931 (Version 3)
Quarter: 2016Q4

REPORT INFORMATION
  Report Type: Spontaneous
  Country: US (occurrence: US)
  Receive Date: 20160829
  Receipt Date: 20161123
  Transmission Date: 20170207
  Serious: Yes (Hospitalization)
  Sender: FDA-Public Use
  Company Number: US-PFIZER INC-2016402094

PATIENT
  Age: 72 Year
  Sex: Male
  Weight: 68 kg

DRUGS (9)
  1. VFEND [Suspect]
     Active Substance: VORICONAZOLE
     Indication: TRANSPLANT
     Dosage: 200 MG, 2X/DAY
     Route: 048
     Dates: start: 20160524
  2. ACYCLOVIR /00587301/ [Concomitant]
     Active Substance: ACYCLOVIR
     Dosage: UNK
  3. DIGOXIN. [Concomitant]
     Active Substance: DIGOXIN
     Dosage: UNK
  4. ATOVAQUONE. [Concomitant]
     Active Substance: ATOVAQUONE
     Dosage: UNK
  5. MAGNESIUM [Concomitant]
     Active Substance: MAGNESIUM
     Dosage: UNK
  6. MYCOPHENOLATE [Concomitant]
     Active Substance: MYCOPHENOLIC ACID
     Dosage: UNK
  7. VFEND [Suspect]
     Active Substance: VORICONAZOLE
     Indication: MYELODYSPLASTIC SYNDROME
     Dosage: 20 MG, 2X/DAY
     Dates: start: 201606
  8. METOPROLOL. [Concomitant]
     Active Substance: METOPROLOL
     Dosage: UNK
  9. POTASSIUM [Concomitant]
     Active Substance: POTASSIUM
     Dosage: UNK

REACTIONS (3)
  - Pleural effusion [Recovered/Resolved]
  - Fatigue [Recovering/Resolving]
  - Pericardial effusion [Recovered/Resolved]

NARRATIVE: CASE EVENT DATE: 201607
